FAERS Safety Report 16977792 (Version 2)
Quarter: 2019Q4

REPORT INFORMATION
  Report Type: Spontaneous
  Country: DE (occurrence: DE)
  Receive Date: 20191031
  Receipt Date: 20191106
  Transmission Date: 20200122
  Serious: Yes (Other)
  Sender: FDA-Public Use
  Company Number: DE-009507513-1910DEU016023

PATIENT
  Age: 52 Year
  Sex: Male

DRUGS (3)
  1. PEMBROLIZUMAB. [Suspect]
     Active Substance: PEMBROLIZUMAB
     Indication: BRONCHIAL CARCINOMA
     Dosage: UNK
     Dates: start: 20181221
  2. PEMETREXED DISODIUM [Suspect]
     Active Substance: PEMETREXED DISODIUM
     Indication: BRONCHIAL CARCINOMA
     Dosage: UNK
     Dates: start: 20181221
  3. CARBOPLATIN. [Suspect]
     Active Substance: CARBOPLATIN
     Indication: BRONCHIAL CARCINOMA
     Dosage: UNK
     Dates: start: 20181221

REACTIONS (7)
  - Groin pain [Unknown]
  - Malignant neoplasm progression [Unknown]
  - Spinal pain [Unknown]
  - Fatigue [Unknown]
  - Bronchostenosis [Unknown]
  - Tumour pseudoprogression [Unknown]
  - Pain in jaw [Unknown]

NARRATIVE: CASE EVENT DATE: 201904
